FAERS Safety Report 8114143-2 (Version None)
Quarter: 2012Q1

REPORT INFORMATION
  Report Type: 
  Country: None (occurrence: None)
  Receive Date: 20120204
  Receipt Date: 20120123
  Transmission Date: 20120608
  Serious: Yes (Hospitalization, Other)
  Sender: FDA-Public Use
  Company Number: GB-MYLANLABS-2011S1013861

PATIENT
  Age: 66 Year
  Sex: Female

DRUGS (9)
  1. CLOZARIL [Suspect]
     Route: 048
     Dates: start: 20030101, end: 20110228
  2. AMISULPRIDE [Suspect]
     Route: 049
     Dates: start: 20110401
  3. SIMVASTATIN [Suspect]
     Indication: BLOOD CHOLESTEROL INCREASED
     Dates: start: 20100101, end: 20110228
  4. CLOZARIL [Suspect]
     Dates: start: 20110401
  5. ACETYLSALICYLIC ACID SRT [Concomitant]
     Indication: PRODUCT USED FOR UNKNOWN INDICATION
  6. CLOZARIL [Suspect]
     Indication: SCHIZOPHRENIA
     Route: 048
     Dates: start: 20010305
  7. LEVOTHYROXINE SODIUM [Concomitant]
     Indication: HYPOTHYROIDISM
     Route: 048
     Dates: start: 20100101
  8. CLOZARIL [Suspect]
     Dates: start: 20111220, end: 20120107
  9. AMISULPRIDE [Suspect]
     Indication: SCHIZOPHRENIA
     Route: 048
     Dates: start: 20030101, end: 20110228

REACTIONS (7)
  - HYPOTHYROIDISM [None]
  - ATRIAL FIBRILLATION [None]
  - HAEMOGLOBIN DECREASED [None]
  - OVARIAN ADENOMA [None]
  - INTERNATIONAL NORMALISED RATIO INCREASED [None]
  - LIVER FUNCTION TEST ABNORMAL [None]
  - PNEUMONIA [None]
